FAERS Safety Report 11292444 (Version 1)
Quarter: 2015Q3

REPORT INFORMATION
  Report Type: Spontaneous
  Country: US (occurrence: None)
  Receive Date: 20150721
  Receipt Date: 20150721
  Transmission Date: 20151125
  Serious: Yes (Other)
  Sender: FDA-Public Use
  Company Number: None

PATIENT
  Age: 60 Year
  Sex: Male
  Weight: 81.65 kg

DRUGS (5)
  1. DIAZAPAM 10 MG GEL [Suspect]
     Active Substance: DIAZEPAM
     Indication: ANXIETY
     Dosage: 120 4X^S PER DAY BY MOUTH
     Route: 048
  2. SIMVISTATIN [Concomitant]
     Active Substance: SIMVASTATIN
  3. LOZAYA [Concomitant]
  4. DIAZAPAM 10 MG GEL [Suspect]
     Active Substance: DIAZEPAM
     Indication: PANIC ATTACK
     Dosage: 120 4X^S PER DAY BY MOUTH
     Route: 048
  5. ASPIRIN. [Concomitant]
     Active Substance: ASPIRIN

REACTIONS (5)
  - Drug effect decreased [None]
  - Product friable [None]
  - Product quality issue [None]
  - Anxiety [None]
  - Product substitution issue [None]

NARRATIVE: CASE EVENT DATE: 201504
